FAERS Safety Report 21357879 (Version 1)
Quarter: 2022Q3

REPORT INFORMATION
  Report Type: Spontaneous
  Country: DE (occurrence: DE)
  Receive Date: 20220921
  Receipt Date: 20220921
  Transmission Date: 20221026
  Serious: Yes (Hospitalization, Other)
  Sender: FDA-Public Use
  Company Number: DE-ADRED-04462-02

PATIENT
  Age: 74 Year
  Sex: Female
  Weight: 73 kg

DRUGS (10)
  1. TRASTUZUMAB [Suspect]
     Active Substance: TRASTUZUMAB
     Dosage: UNK; LAST GIFT ON SEPTEMBER 6TH
     Route: 042
     Dates: end: 20210906
  2. IRBESARTAN [Suspect]
     Active Substance: IRBESARTAN
     Dosage: 300 MG, QD; 1-0-0-0
     Route: 048
  3. CARBOPLATIN [Suspect]
     Active Substance: CARBOPLATIN
     Dosage: UNK; LAST GIFT ON SEPTEMBER 6TH
     Route: 042
     Dates: end: 20210906
  4. DOCETAXEL [Suspect]
     Active Substance: DOCETAXEL
     Dosage: UNK; LAST GIFT ON SEPTEMBER 6TH
     Route: 042
     Dates: end: 20210906
  5. TORSEMIDE [Suspect]
     Active Substance: TORSEMIDE
     Dosage: 10 MG; 0.5-0-0-0
     Route: 048
  6. ATORVASTATIN [Concomitant]
     Active Substance: ATORVASTATIN
     Dosage: 40 MG, QD; 0-0-0-1
     Route: 048
  7. ASPIRIN [Concomitant]
     Active Substance: ASPIRIN
     Dosage: 100 MG, QD; 0-1-0-0
     Route: 048
  8. POTASSIUM IODIDE [Concomitant]
     Active Substance: POTASSIUM IODIDE
     Dosage: 100 UG, QD; 0-1-0-0
     Route: 048
  9. BISOPROLOL [Concomitant]
     Active Substance: BISOPROLOL
     Dosage: 5 MG, BID; 1-0-1-0
     Route: 048
  10. LERCANIDIPINE HYDROCHLORIDE [Concomitant]
     Active Substance: LERCANIDIPINE HYDROCHLORIDE
     Dosage: 10 MG, QD; 0-0-1-0
     Route: 048

REACTIONS (7)
  - Haematochezia [Unknown]
  - Anuria [Unknown]
  - Acute kidney injury [Unknown]
  - General physical health deterioration [Unknown]
  - Diarrhoea [Unknown]
  - Nausea [Unknown]
  - Vomiting [Unknown]
